FAERS Safety Report 8223729-6 (Version None)
Quarter: 2012Q1

REPORT INFORMATION
  Report Type: 
  Country: None (occurrence: None)
  Receive Date: 20120321
  Receipt Date: 20120309
  Transmission Date: 20120608
  Serious: Yes (Hospitalization)
  Sender: FDA-Public Use
  Company Number: CA-JNJFOC-20120305028

PATIENT
  Sex: Female
  Weight: 54.6 kg

DRUGS (21)
  1. PREDNISONE [Concomitant]
     Route: 065
  2. METOPROLOL SUCCINATE [Concomitant]
     Route: 065
  3. ESTROGEN [Concomitant]
     Route: 065
  4. HYDROMORPHONE HCL [Concomitant]
     Route: 065
  5. ASPIRIN [Concomitant]
     Route: 065
  6. RANITIDINE [Concomitant]
     Route: 065
  7. GLICLAZIDE [Concomitant]
     Route: 065
  8. FLEXERIL [Concomitant]
     Route: 065
  9. METHOTREXATE [Concomitant]
     Route: 065
  10. HYDROCHLOROTHIAZIDE [Concomitant]
     Route: 065
  11. VITAMIN D [Concomitant]
     Route: 065
  12. FOLIC ACID [Concomitant]
     Route: 065
  13. METFORMIN HCL [Concomitant]
     Route: 065
  14. REMICADE [Suspect]
     Indication: RHEUMATOID ARTHRITIS
     Route: 042
     Dates: start: 20110301
  15. DIGOXIN [Concomitant]
     Route: 065
  16. RAMIPRIL [Concomitant]
     Route: 065
  17. ZOPICLONE [Concomitant]
     Route: 065
  18. POTASSIUM [Concomitant]
     Route: 065
  19. SCOPOLAMINE [Concomitant]
     Route: 065
  20. TRIMEBUTINE [Concomitant]
     Route: 065
  21. CALCIUM CARBONATE [Concomitant]
     Route: 065

REACTIONS (1)
  - MIGRAINE [None]
